FAERS Safety Report 25224323 (Version 4)
Quarter: 2025Q2

REPORT INFORMATION
  Report Type: Spontaneous
  Country: DE (occurrence: DE)
  Receive Date: 20250422
  Receipt Date: 20250509
  Transmission Date: 20250717
  Serious: Yes (Life-Threatening, Hospitalization, Other)
  Sender: AUROBINDO
  Company Number: DE-MLMSERVICE-20250404-PI469196-00291-1

PATIENT
  Age: 47 Year
  Sex: Male

DRUGS (3)
  1. SERTRALINE [Suspect]
     Active Substance: SERTRALINE HYDROCHLORIDE
     Indication: Depression
     Route: 065
  2. ROSUVASTATIN [Suspect]
     Active Substance: ROSUVASTATIN
     Indication: Hyperlipidaemia
     Route: 065
  3. EZETIMIBE [Suspect]
     Active Substance: EZETIMIBE
     Indication: Hyperlipidaemia
     Route: 065

REACTIONS (7)
  - Anuria [Not Recovered/Not Resolved]
  - Acute kidney injury [Not Recovered/Not Resolved]
  - Rhabdomyolysis [Recovering/Resolving]
  - Cardiac failure [Recovering/Resolving]
  - Hyperkalaemia [Recovering/Resolving]
  - Metabolic acidosis [Recovering/Resolving]
  - Fluid retention [Not Recovered/Not Resolved]
